FAERS Safety Report 9381502 (Version 2)
Quarter: 2013Q3

REPORT INFORMATION
  Report Type: Spontaneous
  Country: GB (occurrence: GB)
  Receive Date: 20130703
  Receipt Date: 20130816
  Transmission Date: 20140515
  Serious: Yes (Death, Other)
  Sender: FDA-Public Use
  Company Number: PHFR2013GB003751

PATIENT
  Age: 37 Year
  Sex: Male
  Weight: 80 kg

DRUGS (7)
  1. CLOZARIL [Suspect]
     Indication: SCHIZOPHRENIA
     Dosage: UNK
     Dates: start: 1993
  2. CLOZARIL [Suspect]
     Dosage: UNK
     Dates: start: 20090612
  3. CLOZARIL [Suspect]
     Dosage: 475 MG, UNK
     Route: 048
  4. CLOZARIL [Suspect]
     Dosage: 225 MG,MANE
  5. CLOZARIL [Suspect]
     Dosage: 250 MG, NOCTE
  6. VENLAFEX XL [Concomitant]
     Indication: DEPRESSION
     Dosage: 75 MG, NOCTE
  7. LORAZEPAM [Concomitant]
     Dosage: UNK 1 TO 2 MG, PRN

REACTIONS (21)
  - Asphyxia [Fatal]
  - Foreign body aspiration [Fatal]
  - Brain injury [Unknown]
  - Memory impairment [Unknown]
  - Speech disorder [Recovering/Resolving]
  - Gait disturbance [Unknown]
  - Haemorrhage [Unknown]
  - Suicide attempt [Unknown]
  - Suicidal ideation [Unknown]
  - Nervous system disorder [Unknown]
  - Circulatory collapse [Unknown]
  - Cardiac arrest [Unknown]
  - Eating disorder [Unknown]
  - Impulsive behaviour [Unknown]
  - Aggression [Unknown]
  - Disturbance in attention [Recovering/Resolving]
  - Depressed mood [Unknown]
  - Disinhibition [Unknown]
  - Fatigue [Unknown]
  - Dysphagia [Unknown]
  - Salivary hypersecretion [Unknown]
